FAERS Safety Report 18652071 (Version 1)
Quarter: 2020Q4

REPORT INFORMATION
  Report Type: Spontaneous
  Country: US (occurrence: US)
  Receive Date: 20201223
  Receipt Date: 20201223
  Transmission Date: 20210114
  Serious: No
  Sender: FDA-Public Use
  Company Number: US-BEH-2020126009

PATIENT
  Sex: Male

DRUGS (2)
  1. ZEMAIRA [Suspect]
     Active Substance: .ALPHA.1-PROTEINASE INHIBITOR HUMAN
     Indication: HEREDITARY ANGIOEDEMA
     Dosage: 4900 MILLIGRAM, QW
     Route: 042
     Dates: start: 201910
  2. ZEMAIRA [Suspect]
     Active Substance: .ALPHA.1-PROTEINASE INHIBITOR HUMAN
     Indication: HEREDITARY ANGIOEDEMA
     Dosage: 4900 MILLIGRAM, QW
     Route: 042
     Dates: start: 201910

REACTIONS (3)
  - Off label use [Unknown]
  - No adverse event [Unknown]
  - Weight increased [Unknown]

NARRATIVE: CASE EVENT DATE: 2020
